FAERS Safety Report 5005543-8 (Version None)
Quarter: 2006Q2

REPORT INFORMATION
  Report Type: 
  Country: None (occurrence: None)
  Receive Date: 20060518
  Receipt Date: 20060511
  Transmission Date: 20061013
  Serious: Yes (Other)
  Sender: FDA-Public Use
  Company Number: DE-JNJFOC-20060502422

PATIENT
  Age: 62 Year
  Sex: Female

DRUGS (1)
  1. TAVANIC [Suspect]
     Route: 048
     Dates: start: 20051223

REACTIONS (2)
  - MUSCLE RUPTURE [None]
  - TENDONITIS [None]
